FAERS Safety Report 22091183 (Version 1)
Quarter: 2023Q1

REPORT INFORMATION
  Report Type: Spontaneous
  Country: US (occurrence: US)
  Receive Date: 20230314
  Receipt Date: 20230314
  Transmission Date: 20230418
  Serious: Yes (Other)
  Sender: FDA-Public Use
  Company Number: US-002147023-NVSC2023US054730

PATIENT
  Sex: Male
  Weight: 2.535 kg

DRUGS (2)
  1. ROCURONIUM BROMIDE [Suspect]
     Active Substance: ROCURONIUM BROMIDE
     Indication: Foetal exposure during pregnancy
     Dosage: 1.5 MG/KG (VIA AMNIOCENTESIS NEEDLE TO PROVIDE FETAL INTRAMUSCULAR INJECTION)
     Route: 030
  2. FENTANYL [Suspect]
     Active Substance: FENTANYL
     Indication: Foetal exposure during pregnancy
     Dosage: 1 UG/KG (VIA AMNIOCENTESIS NEEDLE TO PROVIDE FETAL INTRAMUSCULAR INJECTION)
     Route: 030

REACTIONS (2)
  - Premature baby [Unknown]
  - Foetal exposure during pregnancy [Unknown]
